FAERS Safety Report 18378247 (Version 1)
Quarter: 2020Q4

REPORT INFORMATION
  Report Type: Not Available
  Country: CN (occurrence: CN)
  Receive Date: 20201013
  Receipt Date: 20201013
  Transmission Date: 20210114
  Serious: Yes (Hospitalization, Other)
  Sender: FDA-Public Use
  Company Number: CN-TAIHO ONCOLOGY  INC-CN-2020-00168

PATIENT
  Age: 58 Year
  Sex: Female
  Weight: 66 kg

DRUGS (3)
  1. SODIUM CHLORIDE. [Concomitant]
     Active Substance: SODIUM CHLORIDE
     Indication: COLON CANCER RECURRENT
     Dosage: DAY 1, Q21D
     Route: 041
     Dates: start: 20200917, end: 20200917
  2. BEVACIZUMAB. [Concomitant]
     Active Substance: BEVACIZUMAB
     Indication: COLON CANCER RECURRENT
     Dosage: DAY 1, Q21D
     Route: 041
     Dates: start: 20200917, end: 20200917
  3. LONSURF [Suspect]
     Active Substance: TIPIRACIL HYDROCHLORIDE\TRIFLURIDINE
     Indication: COLON CANCER RECURRENT
     Dosage: DAY 1 TO 5 AND 8 TO12
     Route: 048
     Dates: start: 20200917, end: 20200921

REACTIONS (4)
  - Blood bilirubin increased [Unknown]
  - Alanine aminotransferase increased [Unknown]
  - Aspartate aminotransferase increased [Unknown]
  - Liver injury [Unknown]

NARRATIVE: CASE EVENT DATE: 20200921
